FAERS Safety Report 24130382 (Version 1)
Quarter: 2024Q3

REPORT INFORMATION
  Report Type: Spontaneous
  Country: US (occurrence: US)
  Receive Date: 20240724
  Receipt Date: 20240724
  Transmission Date: 20241017
  Serious: No
  Sender: STEMLINE THERAPEUTICS
  Company Number: US-Stemline Therapeutics, Inc.-2024ST003730

PATIENT
  Age: 53 Year
  Sex: Female

DRUGS (2)
  1. ORSERDU [Suspect]
     Active Substance: ELACESTRANT
     Indication: Product used for unknown indication
     Route: 048
  2. ORSERDU [Suspect]
     Active Substance: ELACESTRANT
     Route: 048
     Dates: start: 20240525

REACTIONS (6)
  - Therapy interrupted [Recovered/Resolved]
  - Intentional product use issue [Recovered/Resolved]
  - Migraine [Recovered/Resolved]
  - Primary stabbing headache [Recovered/Resolved]
  - Visual field defect [Recovered/Resolved]
  - Constipation [Recovered/Resolved]
